FAERS Safety Report 13922077 (Version 1)
Quarter: 2017Q3

REPORT INFORMATION
  Report Type: Spontaneous
  Country: US (occurrence: US)
  Receive Date: 20170830
  Receipt Date: 20170830
  Transmission Date: 20171127
  Serious: No
  Sender: FDA-Public Use
  Company Number: US-TARO-2016TAR00777

PATIENT
  Age: 79 Year
  Sex: Male

DRUGS (1)
  1. WARFARIN SODIUM TABLETS USP 5MG [Suspect]
     Active Substance: WARFARIN SODIUM

REACTIONS (5)
  - Epistaxis [Unknown]
  - Peripheral swelling [Unknown]
  - Rash pruritic [Unknown]
  - Alopecia [Unknown]
  - Fatigue [Unknown]

NARRATIVE: CASE EVENT DATE: 2016
